FAERS Safety Report 22097919 (Version 1)
Quarter: 2023Q1

REPORT INFORMATION
  Report Type: Report from Study
  Country: US (occurrence: US)
  Receive Date: 20230315
  Receipt Date: 20230315
  Transmission Date: 20230418
  Serious: Yes (Life-Threatening, Hospitalization)
  Sender: FDA-Public Use
  Company Number: US-ARGENX-2023-ARGX-US000064

PATIENT

DRUGS (1)
  1. VYVGART [Suspect]
     Active Substance: EFGARTIGIMOD ALFA-FCAB
     Indication: Product used for unknown indication
     Dosage: UNK
     Route: 042
     Dates: start: 20221215, end: 20221229

REACTIONS (7)
  - Mechanical ventilation [Unknown]
  - Asthenia [Unknown]
  - Tracheostomy [Unknown]
  - Fall [Unknown]
  - Contusion [Unknown]
  - Eye swelling [Unknown]
  - Neck pain [Unknown]

NARRATIVE: CASE EVENT DATE: 20230105
